FAERS Safety Report 14333968 (Version 8)
Quarter: 2022Q4

REPORT INFORMATION
  Report Type: Spontaneous
  Country: GB (occurrence: GB)
  Receive Date: 20171228
  Receipt Date: 20221124
  Transmission Date: 20230113
  Serious: Yes (Death, Hospitalization, Other)
  Sender: FDA-Public Use
  Company Number: GB-EMA-DD-20171213-FAIZANEVPROD-082925

PATIENT
  Age: 75 Year
  Sex: Female
  Weight: 81.5 kg

DRUGS (26)
  1. DEXAMETHASONE [Suspect]
     Active Substance: DEXAMETHASONE
     Indication: Plasma cell myeloma
     Dosage: 40 MG, 1 DOSE DAILY
     Route: 048
     Dates: start: 20150722
  2. DEXAMETHASONE [Suspect]
     Active Substance: DEXAMETHASONE
     Dosage: 40 MG, 1 DOSE WEEKLY
     Route: 048
     Dates: start: 20150708
  3. POMALIDOMIDE [Suspect]
     Active Substance: POMALIDOMIDE
     Indication: Plasma cell myeloma
     Route: 048
     Dates: start: 20150701, end: 20150721
  4. POMALIDOMIDE [Suspect]
     Active Substance: POMALIDOMIDE
     Dosage: 84 MG, 1 DOSE 28 DAYS (4 MG)
     Route: 048
     Dates: start: 20150721, end: 20150721
  5. POMALIDOMIDE [Suspect]
     Active Substance: POMALIDOMIDE
     Dosage: 84 MG, 1 DOSE 28 DAYS (4 MG)
     Route: 048
     Dates: start: 20150630
  6. POMALIDOMIDE [Suspect]
     Active Substance: POMALIDOMIDE
     Dosage: 84 MILLIGRAM, Q28D
     Route: 048
     Dates: start: 20150701, end: 20150721
  7. POMALIDOMIDE [Suspect]
     Active Substance: POMALIDOMIDE
     Dosage: 4 MG, 24 DOSE 28 DAYS
     Route: 048
     Dates: start: 20150630
  8. DEXAMETHASONE [Suspect]
     Active Substance: DEXAMETHASONE
     Indication: Plasma cell myeloma
     Route: 048
     Dates: start: 20080811, end: 20080811
  9. DEXAMETHASONE [Suspect]
     Active Substance: DEXAMETHASONE
     Dosage: 40 MG, 1 DOSE WEEKLY
     Route: 048
     Dates: start: 20150630
  10. DEXAMETHASONE [Suspect]
     Active Substance: DEXAMETHASONE
     Dosage: 40 MG, 1 DOSE WEEKLY
     Route: 048
     Dates: start: 20150715
  11. DEXAMETHASONE [Suspect]
     Active Substance: DEXAMETHASONE
     Route: 048
     Dates: start: 20110308, end: 20110520
  12. DEXAMETHASONE [Suspect]
     Active Substance: DEXAMETHASONE
     Dosage: 40 MG, 1 DOSE WEEKLY
     Route: 048
     Dates: start: 20150708
  13. DEXAMETHASONE [Suspect]
     Active Substance: DEXAMETHASONE
     Dosage: 40 MILLIGRAM DAILY; 40 MG
     Route: 048
     Dates: start: 20150722
  14. OMEPRAZOLE [Concomitant]
     Active Substance: OMEPRAZOLE
     Indication: Product used for unknown indication
     Route: 065
     Dates: start: 20150630
  15. OMEPRAZOLE [Concomitant]
     Active Substance: OMEPRAZOLE
  16. CLODRONIC ACID [Concomitant]
     Active Substance: CLODRONIC ACID
     Indication: Plasma cell myeloma
     Dosage: 1040 MILLIGRAM DAILY; 1040 MG, THERAPY END FLAG: DRUG NO LONGER ADMINISTERED
     Route: 065
  17. ENOXAPARIN [Concomitant]
     Active Substance: ENOXAPARIN
     Indication: Thrombosis prophylaxis
     Route: 048
     Dates: start: 20150630
  18. CODEINE [Concomitant]
     Active Substance: CODEINE
     Indication: Pain
     Dosage: 30 MILLIGRAM DAILY; THERAPY END FLAG: DRUG NO LONGER ADMINISTERED
     Route: 048
     Dates: start: 201504, end: 20150706
  19. CODEINE [Concomitant]
     Active Substance: CODEINE
     Dosage: 120 MILLIGRAM DAILY; 30 MG, THERAPY END FLAG: DRUG NO LONGER ADMINISTERED
     Route: 048
     Dates: start: 201504, end: 20150706
  20. ACETAMINOPHEN [Concomitant]
     Active Substance: ACETAMINOPHEN
     Indication: Pain
     Dosage: 4 GRAM DAILY; 1 GRAM, THERAPY END FLAG: DRUG NO LONGER ADMINISTERED
     Route: 048
     Dates: start: 201504, end: 20150706
  21. ACETAMINOPHEN [Concomitant]
     Active Substance: ACETAMINOPHEN
     Dosage: 1 GRAM DAILY; 1 GRAM, THERAPY END FLAG: DRUG NO LONGER ADMINISTERED
     Dates: start: 201504, end: 20150706
  22. AMLODIPINE [Concomitant]
     Active Substance: AMLODIPINE BESYLATE
     Indication: Hypertension
     Dosage: 5 MILLIGRAM DAILY; THERAPY END FLAG: DRUG NO LONGER ADMINISTERED
     Route: 048
     Dates: start: 2010, end: 20150622
  23. MORPHINE SULFATE [Concomitant]
     Active Substance: MORPHINE SULFATE
     Indication: Pain
     Dosage: 2.5 ML, THERAPY END FLAG: DRUG NO LONGER ADMINISTERED
     Route: 065
     Dates: start: 20150706, end: 20150828
  24. ASPIRIN [Concomitant]
     Active Substance: ASPIRIN
     Indication: Thrombosis prophylaxis
     Dosage: 12521.88 MILLIGRAM
     Route: 065
  25. ASPIRIN [Concomitant]
     Active Substance: ASPIRIN
     Dosage: 75 MILLIGRAM DAILY; THERAPY END FLAG: DRUG NO LONGER ADMINISTERED
     Route: 048
     Dates: start: 20150120, end: 201506
  26. DURAMORPH [Concomitant]
     Active Substance: MORPHINE SULFATE
     Indication: Pain

REACTIONS (20)
  - Plasma cell myeloma [Fatal]
  - Condition aggravated [Unknown]
  - Dyspnoea [Fatal]
  - Anaemia [Fatal]
  - Hypercalcaemia [Fatal]
  - Arthralgia [Recovered/Resolved]
  - Blood alkaline phosphatase increased [Recovered/Resolved]
  - Arthritis reactive [Recovered/Resolved]
  - Fatigue [Recovered/Resolved]
  - Neutropenia [Recovered/Resolved]
  - Leukopenia [Recovered/Resolved]
  - Hepatic enzyme increased [Recovered/Resolved]
  - Malaise [Fatal]
  - Lower respiratory tract infection [Recovered/Resolved]
  - Infection [Fatal]
  - Oedema peripheral [Not Recovered/Not Resolved]
  - Peripheral sensory neuropathy [Not Recovered/Not Resolved]
  - Thrombocytopenia [Recovered/Resolved]
  - Nausea [Recovered/Resolved]
  - Diarrhoea [Recovered/Resolved]

NARRATIVE: CASE EVENT DATE: 20150706
